FAERS Safety Report 16066044 (Version 1)
Quarter: 2019Q1

REPORT INFORMATION
  Report Type: Spontaneous
  Country: GB (occurrence: GB)
  Receive Date: 20190313
  Receipt Date: 20190313
  Transmission Date: 20190418
  Serious: Yes (Other)
  Sender: FDA-Public Use
  Company Number: GB-ACCORD-112202

PATIENT
  Age: 66 Year
  Sex: Male

DRUGS (1)
  1. TEMOZOLOMIDE. [Suspect]
     Active Substance: TEMOZOLOMIDE
     Indication: GLIOBLASTOMA
     Dosage: UNK (3 CYCLES)
     Route: 048
     Dates: start: 2014

REACTIONS (3)
  - Acute kidney injury [Unknown]
  - Constipation [Recovered/Resolved]
  - Pruritus generalised [Recovered/Resolved]
